FAERS Safety Report 12573292 (Version 1)
Quarter: 2016Q3

REPORT INFORMATION
  Report Type: Spontaneous
  Country: FR (occurrence: FR)
  Receive Date: 20160720
  Receipt Date: 20160720
  Transmission Date: 20161109
  Serious: Yes (Death, Hospitalization, Other)
  Sender: FDA-Public Use
  Company Number: FR-PFIZER INC-2016331342

PATIENT
  Age: 79 Year
  Sex: Male

DRUGS (10)
  1. ONBREZ [Concomitant]
     Active Substance: INDACATEROL
     Dosage: UNK
  2. SPIRIVA [Concomitant]
     Active Substance: TIOTROPIUM BROMIDE MONOHYDRATE
     Dosage: UNK
  3. DEBRIDAT [Concomitant]
     Active Substance: TRIMEBUTINE MALEATE
     Dosage: UNK
  4. DISCOTRINE [Concomitant]
     Active Substance: NITROGLYCERIN
     Dosage: UNK
  5. DALACINE [Suspect]
     Active Substance: CLINDAMYCIN HYDROCHLORIDE
     Indication: SEPTIC ARTHRITIS STAPHYLOCOCCAL
     Dosage: 600 MG, 3X/DAY
     Route: 048
     Dates: start: 20160602
  6. CALCIPARINE [Concomitant]
     Active Substance: HEPARIN CALCIUM
     Dosage: UNK
  7. PHLOROGLUCINOL [Concomitant]
     Active Substance: PHLOROGLUCINOL
     Dosage: UNK
  8. FUCIDINE [Suspect]
     Active Substance: FUSIDIC ACID
     Indication: SEPTIC ARTHRITIS STAPHYLOCOCCAL
     Dosage: 500 MG, 3X/DAY
     Route: 048
     Dates: start: 20160602, end: 20160623
  9. DAFALGAN [Concomitant]
     Active Substance: ACETAMINOPHEN
     Dosage: UNK
  10. INEXIUM [Concomitant]
     Active Substance: ESOMEPRAZOLE
     Dosage: UNK

REACTIONS (5)
  - Hyperbilirubinaemia [Fatal]
  - Hypothermia [Unknown]
  - Coma [Unknown]
  - Bradycardia [Unknown]
  - Jaundice [Fatal]

NARRATIVE: CASE EVENT DATE: 201606
